FAERS Safety Report 17114570 (Version 1)
Quarter: 2019Q4

REPORT INFORMATION
  Report Type: Spontaneous
  Country: RU (occurrence: RU)
  Receive Date: 20191205
  Receipt Date: 20191205
  Transmission Date: 20200122
  Serious: Yes (Other)
  Sender: FDA-Public Use
  Company Number: RU-ROCHE-2490094

PATIENT

DRUGS (1)
  1. OMALIZUMAB. [Suspect]
     Active Substance: OMALIZUMAB
     Indication: URTICARIA
     Route: 065

REACTIONS (2)
  - Angioedema [Unknown]
  - Upper respiratory tract infection [Unknown]
